FAERS Safety Report 16883265 (Version 1)
Quarter: 2019Q4

REPORT INFORMATION
  Report Type: Spontaneous
  Country: US (occurrence: US)
  Receive Date: 20191004
  Receipt Date: 20191004
  Transmission Date: 20200122
  Serious: No
  Sender: FDA-Public Use
  Company Number: US-SA-2019SA273182

PATIENT
  Age: 35 Year
  Sex: Male

DRUGS (1)
  1. DUPIXENT [Suspect]
     Active Substance: DUPILUMAB
     Indication: ECZEMA
     Dosage: UNK

REACTIONS (5)
  - Eosinophilia [Unknown]
  - Conjunctivitis [Unknown]
  - Ear pain [Unknown]
  - Hordeolum [Recovered/Resolved]
  - Ear swelling [Unknown]

NARRATIVE: CASE EVENT DATE: 201907
